FAERS Safety Report 6016650-5 (Version None)
Quarter: 2008Q4

REPORT INFORMATION
  Report Type: 
  Country: None (occurrence: None)
  Receive Date: 20081222
  Receipt Date: 20081210
  Transmission Date: 20090506
  Serious: Yes (Other)
  Sender: FDA-Public Use
  Company Number: BR-PFIZER INC-2008097688

PATIENT

DRUGS (7)
  1. FRONTAL [Suspect]
     Indication: STRESS
     Dates: start: 20040101
  2. PLASIL [Concomitant]
     Route: 065
  3. OMEPRAZOLE [Concomitant]
     Route: 065
  4. COMBIRON B 12 [Concomitant]
     Route: 065
  5. ONDASETRON [Concomitant]
  6. BUSCOPAN [Concomitant]
     Dosage: UNK
     Route: 065
  7. DICLOFENAC [Concomitant]
     Dosage: UNK
     Route: 065

REACTIONS (15)
  - AGGRESSION [None]
  - ASTHENOPIA [None]
  - DYSARTHRIA [None]
  - EYE IRRITATION [None]
  - FALL [None]
  - FEELING DRUNK [None]
  - HEADACHE [None]
  - HYPERSOMNIA [None]
  - LACTATION DISORDER [None]
  - MUSCULAR WEAKNESS [None]
  - MYALGIA [None]
  - NAUSEA [None]
  - NERVOUSNESS [None]
  - SUICIDE ATTEMPT [None]
  - TREMOR [None]
